FAERS Safety Report 4711114-0 (Version None)
Quarter: 2005Q3

REPORT INFORMATION
  Report Type: 
  Country: None (occurrence: None)
  Receive Date: 20050708
  Receipt Date: 20050627
  Transmission Date: 20060218
  Serious: Yes (Death, Hospitalization)
  Sender: FDA-Public Use
  Company Number: 143-20785-05060351

PATIENT
  Age: 47 Year
  Sex: Female

DRUGS (1)
  1. THALIDOMIDE - PHARMION (THALIDOMIDE) (50 MILLIGRAM, CAPSULES) [Suspect]
     Indication: MULTIPLE MYELOMA
     Dosage: 100 MG, DAILY, ORAL
     Route: 048
     Dates: start: 20041209, end: 20041230

REACTIONS (5)
  - COMA [None]
  - DISEASE PROGRESSION [None]
  - PARAPLEGIA [None]
  - SEPSIS [None]
  - SPINAL CORD COMPRESSION [None]
